FAERS Safety Report 7499198-0 (Version None)
Quarter: 2011Q2

REPORT INFORMATION
  Report Type: 
  Country: None (occurrence: None)
  Receive Date: 20110524
  Receipt Date: 20110517
  Transmission Date: 20111010
  Serious: Yes (Death)
  Sender: FDA-Public Use
  Company Number: US-ABBOTT-11P-163-0721748-00

PATIENT
  Sex: Male
  Weight: 35.412 kg

DRUGS (6)
  1. LIPITOR [Concomitant]
     Indication: BLOOD CHOLESTEROL INCREASED
  2. LUPRON DEPOT [Suspect]
     Indication: PROSTATE CANCER METASTATIC
     Dates: start: 20091228, end: 20101207
  3. PANTOPRAZOLE [Concomitant]
     Indication: PRODUCT USED FOR UNKNOWN INDICATION
  4. METOPROLOL SUCCINATE [Concomitant]
     Indication: HYPERTENSION
  5. ASPIRIN [Concomitant]
     Indication: CARDIOVASCULAR EVENT PROPHYLAXIS
  6. CASODEX [Concomitant]
     Indication: PROSTATE CANCER

REACTIONS (1)
  - DEATH [None]
